FAERS Safety Report 5191387-3 (Version None)
Quarter: 2006Q4

REPORT INFORMATION
  Report Type: 
  Country: None (occurrence: None)
  Receive Date: 20061220
  Receipt Date: 20061220
  Transmission Date: 20070319
  Serious: Yes (Hospitalization)
  Sender: FDA-Public Use
  Company Number: None

PATIENT
  Sex: Female
  Weight: 84.5 kg

DRUGS (1)
  1. TEMOZOLOMIDE [Suspect]
     Dosage: 3780 MG

REACTIONS (5)
  - DEPRESSED LEVEL OF CONSCIOUSNESS [None]
  - EPISTAXIS [None]
  - HAEMOGLOBIN ABNORMAL [None]
  - PLATELET COUNT ABNORMAL [None]
  - URINARY TRACT INFECTION [None]
